FAERS Safety Report 10504659 (Version 1)
Quarter: 2014Q4

REPORT INFORMATION
  Report Type: Spontaneous
  Country: KR (occurrence: None)
  Receive Date: 20141006
  Receipt Date: 20141006
  Transmission Date: 20150528
  Serious: Yes (Other)
  Sender: FDA-Public Use
  Company Number: KR-JNJFOC-20140915103

PATIENT
  Age: 70 Year
  Sex: Female

DRUGS (1)
  1. DACOGEN [Suspect]
     Active Substance: DECITABINE
     Indication: MYELODYSPLASTIC SYNDROME
     Route: 042
     Dates: start: 20110905, end: 20110905

REACTIONS (3)
  - Otitis media [None]
  - Pneumonia [None]
  - Diverticulitis [None]

NARRATIVE: CASE EVENT DATE: 20120109
